FAERS Safety Report 4839492-2 (Version None)
Quarter: 2005Q4

REPORT INFORMATION
  Report Type: 
  Country: None (occurrence: None)
  Receive Date: 20051129
  Receipt Date: 20051118
  Transmission Date: 20060501
  Serious: Yes (Hospitalization)
  Sender: FDA-Public Use
  Company Number: US-MERCK-0511USA03504

PATIENT
  Age: 62 Year
  Sex: Male
  Weight: 103 kg

DRUGS (6)
  1. VIOXX [Suspect]
     Indication: PAIN
     Route: 048
     Dates: end: 20021101
  2. LIPITOR [Concomitant]
     Route: 065
  3. VITAMINS (UNSPECIFIED) [Concomitant]
     Route: 065
  4. GLYBURIDE [Concomitant]
     Route: 065
  5. GLUCOPHAGE [Concomitant]
     Route: 065
  6. COUMADIN [Concomitant]
     Route: 065

REACTIONS (4)
  - AFFECT LABILITY [None]
  - CEREBROVASCULAR ACCIDENT [None]
  - DEPRESSION [None]
  - SYNCOPE [None]
